FAERS Safety Report 7414579-9 (Version None)
Quarter: 2011Q2

REPORT INFORMATION
  Report Type: 
  Country: None (occurrence: None)
  Receive Date: 20110414
  Receipt Date: 20110411
  Transmission Date: 20111010
  Serious: Yes (Death, Other)
  Sender: FDA-Public Use
  Company Number: US-BRISTOL-MYERS SQUIBB COMPANY-15649973

PATIENT
  Age: 37 Year
  Sex: Female

DRUGS (4)
  1. ABILIFY [Suspect]
     Indication: PSYCHOTIC DISORDER
     Dosage: ABILIFY 2MG. DOSE INCREASED  TO 5MG THEN 10MG
     Dates: start: 20100422
  2. TERBINAFINE HCL [Suspect]
  3. DEPAKOTE [Suspect]
  4. ABILIFY [Suspect]
     Indication: DEPRESSION
     Dosage: ABILIFY 2MG. DOSE INCREASED  TO 5MG THEN 10MG
     Dates: start: 20100422

REACTIONS (6)
  - RASH [None]
  - PREGNANCY [None]
  - BLOOD GLUCOSE INCREASED [None]
  - ABORTION SPONTANEOUS [None]
  - DEATH [None]
  - CEREBROVASCULAR ACCIDENT [None]
